FAERS Safety Report 13105100 (Version 1)
Quarter: 2017Q1

REPORT INFORMATION
  Report Type: Spontaneous
  Country: US (occurrence: US)
  Receive Date: 20170111
  Receipt Date: 20170111
  Transmission Date: 20170428
  Serious: Yes (Hospitalization, Disabling)
  Sender: FDA-Public Use
  Company Number: None

PATIENT
  Age: 33 Year
  Sex: Male
  Weight: 83.92 kg

DRUGS (5)
  1. DESYREL [Suspect]
     Active Substance: TRAZODONE HYDROCHLORIDE
     Indication: MAJOR DEPRESSION
     Dosage: ?          QUANTITY:1/5/^(:}/L/)?/DE EPF??_IS;?
     Route: 048
     Dates: start: 19850801, end: 19850915
  2. ONE-A-DAY VITAMINS [Concomitant]
  3. AMLODIPINE [Concomitant]
     Active Substance: AMLODIPINE BESYLATE
  4. LISINOPRIL. [Concomitant]
     Active Substance: LISINOPRIL
  5. METFORMIN [Concomitant]
     Active Substance: METFORMIN HYDROCHLORIDE

REACTIONS (7)
  - Confusional state [None]
  - Swelling [None]
  - Penis disorder [None]
  - Speech disorder [None]
  - Rhinorrhoea [None]
  - Mania [None]
  - Testicular disorder [None]

NARRATIVE: CASE EVENT DATE: 19860206
